FAERS Safety Report 9075272 (Version 1)
Quarter: 2013Q1

REPORT INFORMATION
  Report Type: Spontaneous
  Country: US (occurrence: US)
  Receive Date: 20130129
  Receipt Date: 20130129
  Transmission Date: 20140127
  Serious: Yes (Other)
  Sender: FDA-Public Use
  Company Number: US-BRISTOL-MYERS SQUIBB COMPANY-17316266

PATIENT
  Age: 87 Year
  Sex: Female

DRUGS (1)
  1. ERBITUX [Suspect]

REACTIONS (1)
  - Dementia Alzheimer^s type [Unknown]
